FAERS Safety Report 21280521 (Version 1)
Quarter: 2022Q3

REPORT INFORMATION
  Report Type: Spontaneous
  Country: DE (occurrence: DE)
  Receive Date: 20220901
  Receipt Date: 20220901
  Transmission Date: 20221027
  Serious: Yes (Other)
  Sender: FDA-Public Use
  Company Number: DE-ABBVIE-22K-062-4509937-00

PATIENT
  Age: 36 Year
  Sex: Female
  Weight: 84 kg

DRUGS (21)
  1. REMICADE [Suspect]
     Active Substance: INFLIXIMAB
     Indication: Colitis ulcerative
     Route: 041
     Dates: end: 201712
  2. REMICADE [Suspect]
     Active Substance: INFLIXIMAB
     Indication: Acne
     Route: 041
     Dates: start: 201910, end: 201910
  3. REMICADE [Suspect]
     Active Substance: INFLIXIMAB
     Indication: Ankylosing spondylitis
     Route: 041
     Dates: start: 20191001, end: 201910
  4. RINVOQ [Suspect]
     Active Substance: UPADACITINIB
     Indication: Colitis ulcerative
     Route: 048
     Dates: start: 202105
  5. ADALIMUMAB [Suspect]
     Active Substance: ADALIMUMAB
     Indication: Ankylosing spondylitis
     Route: 058
     Dates: start: 2016
  6. ADALIMUMAB [Suspect]
     Active Substance: ADALIMUMAB
     Indication: Acne
  7. ADALIMUMAB [Suspect]
     Active Substance: ADALIMUMAB
     Indication: Colitis ulcerative
  8. AZATHIOPRINE [Concomitant]
     Active Substance: AZATHIOPRINE
     Indication: Colitis ulcerative
     Dates: start: 201911, end: 202104
  9. AZATHIOPRINE [Concomitant]
     Active Substance: AZATHIOPRINE
     Indication: Spondylitis
  10. NOVALGIN (METAMIZOLE SODIUM) [Concomitant]
     Active Substance: METAMIZOLE SODIUM
     Indication: Product used for unknown indication
  11. GOLIMUMAB [Concomitant]
     Active Substance: GOLIMUMAB
     Indication: Ankylosing spondylitis
  12. GOLIMUMAB [Concomitant]
     Active Substance: GOLIMUMAB
     Indication: Acne
  13. GOLIMUMAB [Concomitant]
     Active Substance: GOLIMUMAB
     Indication: Colitis ulcerative
  14. CERTOLIZUMAB [Concomitant]
     Active Substance: CERTOLIZUMAB
     Indication: Acne
     Route: 058
  15. CERTOLIZUMAB [Concomitant]
     Active Substance: CERTOLIZUMAB
     Indication: Ankylosing spondylitis
  16. CERTOLIZUMAB [Concomitant]
     Active Substance: CERTOLIZUMAB
     Indication: Colitis ulcerative
  17. ACETAMINOPHEN [Concomitant]
     Active Substance: ACETAMINOPHEN
     Indication: Product used for unknown indication
  18. PREDNISOLONE [Concomitant]
     Active Substance: PREDNISOLONE
     Indication: Ankylosing spondylitis
     Dates: start: 2019
  19. PREDNISOLONE [Concomitant]
     Active Substance: PREDNISOLONE
     Indication: Acne
  20. PREDNISOLONE [Concomitant]
     Active Substance: PREDNISOLONE
     Indication: Colitis ulcerative
  21. PREDNISOLONE [Concomitant]
     Active Substance: PREDNISOLONE
     Indication: Back pain

REACTIONS (12)
  - Pancreatitis [Unknown]
  - Colitis ulcerative [Recovered/Resolved]
  - Nasopharyngitis [Unknown]
  - Back pain [Recovered/Resolved]
  - Diarrhoea [Not Recovered/Not Resolved]
  - Arthralgia [Not Recovered/Not Resolved]
  - Dyspnoea [Unknown]
  - Live birth [Unknown]
  - Gastrointestinal infection [Unknown]
  - Adverse event [Unknown]
  - Drug specific antibody present [Unknown]
  - Maternal exposure during pregnancy [Recovered/Resolved]

NARRATIVE: CASE EVENT DATE: 20160101
